FAERS Safety Report 16541369 (Version 2)
Quarter: 2019Q3

REPORT INFORMATION
  Report Type: Spontaneous
  Country: TN (occurrence: TN)
  Receive Date: 20190708
  Receipt Date: 20190813
  Transmission Date: 20191004
  Serious: Yes (Other)
  Sender: FDA-Public Use
  Company Number: TN-PFIZER INC-2019256661

PATIENT
  Age: 50 Year
  Sex: Female

DRUGS (1)
  1. DOXYCYCLINE MONOHYDRATE [Suspect]
     Active Substance: DOXYCYCLINE
     Indication: BRONCHITIS
     Dosage: 100 MG, UNK
     Route: 048

REACTIONS (2)
  - Fixed eruption [Recovered/Resolved]
  - Dermatitis bullous [Recovered/Resolved]
